FAERS Safety Report 15795367 (Version 2)
Quarter: 2019Q1

REPORT INFORMATION
  Report Type: Spontaneous
  Country: AU (occurrence: AU)
  Receive Date: 20190107
  Receipt Date: 20190107
  Transmission Date: 20190417
  Serious: Yes (Death, Life-Threatening, Hospitalization, Other)
  Sender: FDA-Public Use
  Company Number: PHHY2019AU000772

PATIENT
  Age: 27 Year
  Sex: Male

DRUGS (2)
  1. PREDNISOLONE. [Suspect]
     Active Substance: PREDNISOLONE
     Indication: CROHN^S DISEASE
     Dosage: 40 MG, QD
     Route: 065
  2. AZATHIOPRINE. [Suspect]
     Active Substance: AZATHIOPRINE
     Indication: CROHN^S DISEASE
     Dosage: 150 MG, QD
     Route: 065

REACTIONS (24)
  - Necrosis [Fatal]
  - Hepatosplenomegaly [Fatal]
  - Cytomegalovirus infection [Not Recovered/Not Resolved]
  - Clostridium difficile colitis [Fatal]
  - Septic shock [Fatal]
  - Ileus paralytic [Not Recovered/Not Resolved]
  - Pancytopenia [Not Recovered/Not Resolved]
  - Dermatitis [Fatal]
  - Pulmonary oedema [Fatal]
  - Hepatitis cholestatic [Not Recovered/Not Resolved]
  - Product use in unapproved indication [Unknown]
  - Respiratory failure [Not Recovered/Not Resolved]
  - Inflammation [Fatal]
  - Ecchymosis [Fatal]
  - Pancreatic fibrosis [Fatal]
  - Diffuse alveolar damage [Fatal]
  - Gastrointestinal haemorrhage [Fatal]
  - Bronchopleural fistula [Not Recovered/Not Resolved]
  - Strongyloidiasis [Fatal]
  - Myositis [Fatal]
  - Acute kidney injury [Not Recovered/Not Resolved]
  - Lung abscess [Fatal]
  - Encephalitis [Fatal]
  - Renal tubular necrosis [Fatal]
